FAERS Safety Report 16956606 (Version 1)
Quarter: 2019Q4

REPORT INFORMATION
  Report Type: Other
  Country: CA (occurrence: CA)
  Receive Date: 20191024
  Receipt Date: 20191024
  Transmission Date: 20200122
  Serious: Yes (Hospitalization, Other)
  Sender: FDA-Public Use
  Company Number: CA-PFIZER INC-2019454563

PATIENT
  Age: 45 Year

DRUGS (11)
  1. CLONAZEPAM. [Interacting]
     Active Substance: CLONAZEPAM
     Dosage: 1 MG, 2X/DAY
  2. CLONAZEPAM. [Interacting]
     Active Substance: CLONAZEPAM
     Dosage: 1 MG, 2X/DAY
     Route: 048
  3. TOPIRAMATE. [Interacting]
     Active Substance: TOPIRAMATE
     Indication: SEIZURE
     Dosage: 200 MG, 2X/DAY
     Route: 048
  4. LEVETIRACETAM. [Interacting]
     Active Substance: LEVETIRACETAM
     Indication: SEIZURE
     Dosage: 1500 MG, 2X/DAY
  5. LEVETIRACETAM. [Interacting]
     Active Substance: LEVETIRACETAM
     Dosage: 1500 MG, 2X/DAY
     Route: 048
  6. PHENYTOIN. [Suspect]
     Active Substance: PHENYTOIN
     Indication: SEIZURE
     Dosage: UNK
     Route: 042
  7. CLONAZEPAM. [Interacting]
     Active Substance: CLONAZEPAM
     Indication: SEIZURE
     Dosage: 1 MG, 2X/DAY
  8. VALPROIC ACID. [Interacting]
     Active Substance: VALPROIC ACID
     Indication: SEIZURE
     Dosage: UNK
     Route: 048
  9. VALPROIC ACID. [Interacting]
     Active Substance: VALPROIC ACID
     Dosage: 750 MG, 3X/DAY
     Route: 048
  10. VALPROIC ACID. [Interacting]
     Active Substance: VALPROIC ACID
     Dosage: UNK
     Route: 048
  11. CLONAZEPAM. [Interacting]
     Active Substance: CLONAZEPAM
     Dosage: 1 MG, 2X/DAY
     Route: 048

REACTIONS (5)
  - Toxic encephalopathy [Recovered/Resolved]
  - Generalised tonic-clonic seizure [Recovered/Resolved]
  - Drug interaction [Recovered/Resolved]
  - Pneumonia [Recovered/Resolved]
  - Pneumonia aspiration [Recovered/Resolved]
